FAERS Safety Report 25589164 (Version 1)
Quarter: 2025Q3

REPORT INFORMATION
  Report Type: Spontaneous
  Country: US (occurrence: US)
  Receive Date: 20250722
  Receipt Date: 20250722
  Transmission Date: 20251020
  Serious: Yes (Death, Hospitalization)
  Sender: CHURCH & DWIGHT
  Company Number: US-CHURCH AND DWIGHT CO., INC-2025-CDW-01193

PATIENT
  Age: 92 Year
  Sex: Male

DRUGS (1)
  1. ZICAM COLD REMEDY NASAL SWABS (HOMEOPATHICS) [Suspect]
     Active Substance: HOMEOPATHICS\ZINC ACETATE\ZINC GLUCONATE
     Indication: Nasopharyngitis
     Dosage: 2 DOSAGE FORM, BID
     Route: 045
     Dates: start: 20250313, end: 20250320

REACTIONS (6)
  - Death [Fatal]
  - Pneumonia [Unknown]
  - Sepsis [Unknown]
  - Spinal cord infection [Unknown]
  - Nasopharyngitis [Unknown]
  - Recalled product administered [None]
